FAERS Safety Report 7298931-0 (Version None)
Quarter: 2011Q1

REPORT INFORMATION
  Report Type: 
  Country: None (occurrence: None)
  Receive Date: 20110217
  Receipt Date: 20110208
  Transmission Date: 20110831
  Serious: Yes (Life-Threatening, Hospitalization)
  Sender: FDA-Public Use
  Company Number: PHFR2010IE04675

PATIENT
  Sex: Female
  Weight: 116.3 kg

DRUGS (14)
  1. CLOZARIL [Suspect]
     Dosage: 50 MG MANE + 100 MG NOCTE
     Route: 048
     Dates: start: 20101018
  2. CLOZARIL [Suspect]
     Dosage: 300 MG, QD
     Route: 048
     Dates: start: 20101101
  3. CLOZARIL [Suspect]
     Dosage: 50 MG, BID
     Route: 048
     Dates: start: 20101019
  4. CLOZARIL [Suspect]
     Dosage: 125 MG, QD
     Route: 048
     Dates: start: 20101231
  5. DICLOFENAC SODIUM [Concomitant]
     Dosage: 75 MG, BID
  6. CALCICHEW D3 [Concomitant]
     Dosage: 1 DF, QD
  7. CLOZARIL [Suspect]
     Dosage: 50 MG MANE + 150 MG NOCTE
     Route: 048
     Dates: start: 20101015
  8. SOLIAN [Concomitant]
     Indication: PSYCHOTIC DISORDER
     Dosage: 200 MG, QD
     Dates: start: 20050501
  9. LEXAPRO [Concomitant]
     Dosage: 15 MG, QD
  10. PARACETAMOL [Concomitant]
     Dosage: 2 DF, TID
  11. MOVICOL [Concomitant]
     Dosage: 1 DF, QD
  12. CLOZARIL [Suspect]
     Indication: SCHIZOPHRENIA
     Dosage: 300 MG, QD
     Route: 048
     Dates: start: 20050407
  13. ZOTON [Concomitant]
     Dosage: 30 MG, UNK
  14. ZIMOVANE [Concomitant]
     Dosage: 7.5 G, QD

REACTIONS (22)
  - INTESTINAL OBSTRUCTION [None]
  - ABDOMINAL HERNIA [None]
  - COUGH [None]
  - C-REACTIVE PROTEIN INCREASED [None]
  - RENAL FAILURE [None]
  - PNEUMONIA [None]
  - WOUND DEHISCENCE [None]
  - MALAISE [None]
  - BLOOD CREATININE INCREASED [None]
  - CELLULITIS [None]
  - NEUTROPHIL COUNT INCREASED [None]
  - RED CELL DISTRIBUTION WIDTH INCREASED [None]
  - HAEMOGLOBIN DECREASED [None]
  - SEDATION [None]
  - VOMITING [None]
  - CONSTIPATION [None]
  - WHITE BLOOD CELL COUNT INCREASED [None]
  - ABDOMINAL ADHESIONS [None]
  - NAUSEA [None]
  - STAPHYLOCOCCAL INFECTION [None]
  - HAEMATOCRIT DECREASED [None]
  - FLUID OVERLOAD [None]
